FAERS Safety Report 7999279-9 (Version None)
Quarter: 2011Q4

REPORT INFORMATION
  Report Type: 
  Country: None (occurrence: None)
  Receive Date: 20111221
  Receipt Date: 20111209
  Transmission Date: 20120403
  Serious: Yes (Death)
  Sender: FDA-Public Use
  Company Number: US-CELGENEUS-163-21880-11103242

PATIENT
  Sex: Male

DRUGS (4)
  1. ARANESP [Concomitant]
     Route: 065
  2. VICODIN [Concomitant]
     Route: 065
  3. PROCRIT [Concomitant]
     Route: 065
  4. REVLIMID [Suspect]
     Indication: MYELODYSPLASTIC SYNDROME
     Dosage: 10 MILLIGRAM
     Route: 048
     Dates: start: 20101025, end: 20110909

REACTIONS (1)
  - MYELODYSPLASTIC SYNDROME [None]
